FAERS Safety Report 9363207 (Version 3)
Quarter: 2014Q1

REPORT INFORMATION
  Report Type: Spontaneous
  Country: US (occurrence: US)
  Receive Date: 20130624
  Receipt Date: 20140214
  Transmission Date: 20141002
  Serious: No
  Sender: FDA-Public Use
  Company Number: US-BIOGENIDEC-2013BI056109

PATIENT
  Age: 52 Year
  Sex: Female

DRUGS (2)
  1. AVONEX [Suspect]
     Indication: MULTIPLE SCLEROSIS
     Route: 030
  2. AVONEX [Suspect]
     Indication: MULTIPLE SCLEROSIS
     Route: 030
     Dates: start: 19960501

REACTIONS (20)
  - Nervousness [Unknown]
  - Gait disturbance [Not Recovered/Not Resolved]
  - Abasia [Recovered/Resolved]
  - Dental care [Recovered/Resolved]
  - Fluid retention [Recovered/Resolved]
  - Balance disorder [Recovered/Resolved]
  - Local swelling [Recovered/Resolved]
  - Mobility decreased [Recovered/Resolved with Sequelae]
  - Sinus disorder [Recovered/Resolved with Sequelae]
  - Rubber sensitivity [Recovered/Resolved]
  - Memory impairment [Not Recovered/Not Resolved]
  - Paralysis [Recovered/Resolved]
  - Loss of control of legs [Recovered/Resolved with Sequelae]
  - Drug dose omission [Unknown]
  - Fall [Recovered/Resolved]
  - Injection site reaction [Recovered/Resolved]
  - Depression [Recovered/Resolved]
  - Influenza like illness [Recovered/Resolved]
  - Malaise [Recovered/Resolved]
  - Multiple sclerosis relapse [Recovered/Resolved]
